FAERS Safety Report 6702305-8 (Version None)
Quarter: 2010Q2

REPORT INFORMATION
  Report Type: 
  Country: None (occurrence: None)
  Receive Date: 20100429
  Receipt Date: 20100419
  Transmission Date: 20101027
  Serious: Yes (Life-Threatening, Hospitalization)
  Sender: FDA-Public Use
  Company Number: NO-BRISTOL-MYERS SQUIBB COMPANY-15079619

PATIENT
  Age: 62 Year
  Sex: Male
  Weight: 112 kg

DRUGS (6)
  1. GLUCOPHAGE [Suspect]
     Indication: TYPE 2 DIABETES MELLITUS
     Route: 048
     Dates: end: 20091106
  2. AMARYL [Concomitant]
  3. LIPITOR [Concomitant]
  4. RAMIPRIL [Concomitant]
  5. PANDEMRIX [Concomitant]
     Indication: IMMUNISATION
     Dosage: SACHET
     Route: 051
     Dates: start: 20091105, end: 20091105
  6. ALLOPURINOL [Concomitant]

REACTIONS (9)
  - ABSCESS [None]
  - ACUTE RESPIRATORY FAILURE [None]
  - ELECTROLYTE IMBALANCE [None]
  - HAEMOGLOBIN DECREASED [None]
  - LACTIC ACIDOSIS [None]
  - MALAISE [None]
  - METABOLIC ACIDOSIS [None]
  - RENAL FAILURE ACUTE [None]
  - SEPSIS [None]
